FAERS Safety Report 4506394-0 (Version None)
Quarter: 2004Q4

REPORT INFORMATION
  Report Type: 
  Country: None (occurrence: None)
  Receive Date: 20041025
  Receipt Date: 20040128
  Transmission Date: 20050328
  Serious: Yes (Hospitalization, Other)
  Sender: FDA-Public Use
  Company Number: US-JNJFOC-20040100400

PATIENT
  Age: 68 Year
  Sex: Female

DRUGS (10)
  1. REMICADE [Suspect]
     Indication: RHEUMATOID ARTHRITIS
     Dosage: 300- 400 MG, 1 IN 1 TOTAL
     Dates: start: 20030703
  2. REMICADE [Suspect]
     Indication: RHEUMATOID ARTHRITIS
     Dosage: 300- 400 MG, 1 IN 1 TOTAL
     Dates: start: 20030714
  3. REMICADE [Suspect]
     Indication: RHEUMATOID ARTHRITIS
     Dosage: 300- 400 MG, 1 IN 1 TOTAL
     Dates: start: 20030825
  4. REMICADE [Suspect]
     Indication: RHEUMATOID ARTHRITIS
     Dosage: 300- 400 MG, 1 IN 1 TOTAL
     Dates: start: 20031104
  5. REMICADE [Suspect]
     Indication: RHEUMATOID ARTHRITIS
     Dosage: 300- 400 MG, 1 IN 1 TOTAL
     Dates: start: 20031201
  6. PREDNISONE [Concomitant]
  7. FA (FOLIC ACID) [Concomitant]
  8. METHOTREXATE SODIUM [Concomitant]
  9. TYLENOL [Concomitant]
  10. ALLEGRA [Concomitant]

REACTIONS (5)
  - GENITAL PRURITUS FEMALE [None]
  - MUSCULOSKELETAL STIFFNESS [None]
  - PAIN [None]
  - PULMONARY COCCIDIOIDES [None]
  - THERAPEUTIC RESPONSE DECREASED [None]
